FAERS Safety Report 20467502 (Version 2)
Quarter: 2022Q1

REPORT INFORMATION
  Report Type: Report from Study
  Country: US (occurrence: US)
  Receive Date: 20220214
  Receipt Date: 20220224
  Transmission Date: 20220423
  Serious: Yes (Hospitalization)
  Sender: FDA-Public Use
  Company Number: US-BAUSCH-BL-2021-036278

PATIENT
  Age: 69 Year
  Sex: Female

DRUGS (3)
  1. XIFAXAN [Suspect]
     Active Substance: RIFAXIMIN
     Indication: Hepatic encephalopathy
     Route: 065
     Dates: start: 20211027
  2. XIFAXAN [Suspect]
     Active Substance: RIFAXIMIN
     Route: 048
     Dates: start: 202110, end: 20220208
  3. XIFAXAN [Suspect]
     Active Substance: RIFAXIMIN
     Route: 065

REACTIONS (3)
  - Hospitalisation [Unknown]
  - Intentional product use issue [Unknown]
  - Therapy interrupted [Unknown]
